FAERS Safety Report 8319014-4 (Version None)
Quarter: 2012Q2

REPORT INFORMATION
  Report Type: 
  Country: None (occurrence: None)
  Receive Date: 20120427
  Receipt Date: 20120418
  Transmission Date: 20120825
  Serious: Yes (Hospitalization)
  Sender: FDA-Public Use
  Company Number: FR-JNJFOC-20120410693

PATIENT
  Age: 27 Year
  Sex: Male

DRUGS (2)
  1. RISPERDAL [Suspect]
     Indication: SCHIZOPHRENIA, PARANOID TYPE
     Route: 048
  2. RISPERDAL [Suspect]
     Route: 048

REACTIONS (4)
  - HYPERPROLACTINAEMIA [None]
  - SCHIZOPHRENIA [None]
  - LIBIDO DISORDER [None]
  - INTENTIONAL DRUG MISUSE [None]
